FAERS Safety Report 5572503-8 (Version None)
Quarter: 2007Q4

REPORT INFORMATION
  Report Type: 
  Country: None (occurrence: None)
  Receive Date: 20071219
  Receipt Date: 20071204
  Transmission Date: 20080405
  Serious: Yes (Hospitalization)
  Sender: FDA-Public Use
  Company Number: 2007JP005518

PATIENT
  Age: 74 Year
  Sex: Female

DRUGS (2)
  1. PROGRAF [Suspect]
     Indication: RHEUMATOID ARTHRITIS
     Dosage: 1 MG, ORAL
     Route: 048
  2. RHEUMATREX [Concomitant]

REACTIONS (2)
  - BONE MARROW DISORDER [None]
  - MYELODYSPLASTIC SYNDROME [None]
